FAERS Safety Report 19819631 (Version 1)
Quarter: 2021Q3

REPORT INFORMATION
  Report Type: Spontaneous
  Country: US (occurrence: US)
  Receive Date: 20210913
  Receipt Date: 20210913
  Transmission Date: 20211014
  Serious: Yes (Death, Hospitalization, Other)
  Sender: FDA-Public Use
  Company Number: US-LUPIN PHARMACEUTICALS INC.-2021-16978

PATIENT
  Age: 14 Year
  Sex: Male

DRUGS (4)
  1. IMMUNE GLOBULIN (IMMUNOGLOBULINS NOS) [Suspect]
     Active Substance: IMMUNE GLOBULIN NOS
     Indication: ACUTE HAEMORRHAGIC LEUKOENCEPHALITIS
     Dosage: 400 MILLIGRAM/KILOGRAM, QD
     Route: 042
  2. MANNITOL. [Suspect]
     Active Substance: MANNITOL
     Indication: ACUTE HAEMORRHAGIC LEUKOENCEPHALITIS
     Dosage: UNK
     Route: 042
  3. METHYLPREDNISOLONE. [Suspect]
     Active Substance: METHYLPREDNISOLONE
     Indication: ACUTE HAEMORRHAGIC LEUKOENCEPHALITIS
     Dosage: 1 GRAM, QD
     Route: 042
  4. HYPERTONIC SALINE SOLUTION [Suspect]
     Active Substance: SODIUM CHLORIDE
     Indication: ACUTE HAEMORRHAGIC LEUKOENCEPHALITIS
     Dosage: UNK
     Route: 065

REACTIONS (5)
  - Brain herniation [Fatal]
  - Off label use [Unknown]
  - Drug ineffective for unapproved indication [Fatal]
  - Acute haemorrhagic leukoencephalitis [Fatal]
  - Brain oedema [Fatal]
